FAERS Safety Report 8667498 (Version 2)
Quarter: 2012Q4

REPORT INFORMATION
  Report Type: Report from Study
  Country: JP (occurrence: JP)
  Receive Date: 20120717
  Receipt Date: 20120924
  Transmission Date: 20130627
  Serious: No
  Sender: FDA-Public Use
  Company Number: JP-ELI_LILLY_AND_COMPANY-JP201207003969

PATIENT
  Age: 36 Year
  Sex: Female

DRUGS (8)
  1. DULOXETINE HYDROCHLORIDE [Suspect]
     Indication: DYSTHYMIC DISORDER
     Dosage: 20 mg, qd
     Route: 048
     Dates: start: 20100824, end: 20100830
  2. DULOXETINE HYDROCHLORIDE [Suspect]
     Dosage: 40 mg, qd
     Route: 048
     Dates: start: 20100831, end: 20100909
  3. DULOXETINE HYDROCHLORIDE [Suspect]
     Dosage: 20 mg, qd
     Route: 048
     Dates: start: 20100910, end: 20100916
  4. DULOXETINE HYDROCHLORIDE [Suspect]
     Dosage: 40 mg, qd
     Route: 048
     Dates: start: 20100917, end: 20100924
  5. DULOXETINE HYDROCHLORIDE [Suspect]
     Dosage: 20 mg, qd
     Route: 048
     Dates: start: 20100925, end: 20101206
  6. MEILAX [Concomitant]
     Indication: DYSTHYMIC DISORDER
     Dosage: UNK
  7. WYPAX [Concomitant]
     Indication: DYSTHYMIC DISORDER
     Dosage: UNK, prn
  8. LENDORMIN [Concomitant]
     Indication: INSOMNIA
     Dosage: UNK

REACTIONS (2)
  - Chest pain [Recovered/Resolved]
  - Dyspnoea [Recovering/Resolving]
